FAERS Safety Report 17422082 (Version 3)
Quarter: 2020Q2

REPORT INFORMATION
  Report Type: Report from Study
  Country: None (occurrence: US)
  Receive Date: 20200214
  Receipt Date: 20200427
  Transmission Date: 20200713
  Serious: Yes (Hospitalization, Other)
  Sender: FDA-Public Use
  Company Number: US-ABBVIE-20P-163-3277460-00

PATIENT
  Age: 69 Year
  Sex: Male
  Weight: 87.62 kg

DRUGS (1)
  1. RINVOQ [Suspect]
     Active Substance: UPADACITINIB
     Indication: RHEUMATOID ARTHRITIS
     Route: 048
     Dates: start: 202001, end: 20200202

REACTIONS (5)
  - Thoracic vertebral fracture [Unknown]
  - Oesophageal polyp [Unknown]
  - Sepsis [Unknown]
  - Pneumonia aspiration [Recovered/Resolved]
  - Diverticulum [Not Recovered/Not Resolved]

NARRATIVE: CASE EVENT DATE: 202002
